FAERS Safety Report 19630530 (Version 2)
Quarter: 2021Q4

REPORT INFORMATION
  Report Type: Report from Study
  Country: US (occurrence: US)
  Receive Date: 20210728
  Receipt Date: 20211105
  Transmission Date: 20220303
  Serious: No
  Sender: FDA-Public Use
  Company Number: US-SA-2019SA184983

PATIENT
  Age: 14 Year
  Sex: Female

DRUGS (5)
  1. DUPILUMAB [Suspect]
     Active Substance: DUPILUMAB
     Indication: Eczema
     Dosage: 400 MG, 1X
     Route: 058
     Dates: start: 20190611, end: 20190611
  2. DUPILUMAB [Suspect]
     Active Substance: DUPILUMAB
     Indication: Dermatitis atopic
     Dosage: 400 MG, 1X
     Route: 058
     Dates: start: 201906, end: 201906
  3. DUPILUMAB [Suspect]
     Active Substance: DUPILUMAB
     Dosage: UNK UNK, 1X
     Route: 058
     Dates: start: 20210411, end: 20210411
  4. DUPILUMAB [Suspect]
     Active Substance: DUPILUMAB
     Dosage: 300 MG, QOW
     Route: 058
     Dates: start: 2019, end: 2019
  5. DUPILUMAB [Suspect]
     Active Substance: DUPILUMAB
     Dosage: 200 MG, QOW
     Route: 058
     Dates: start: 201906

REACTIONS (27)
  - Blepharitis [Unknown]
  - Erythema of eyelid [Unknown]
  - Swelling of eyelid [Unknown]
  - Eczema [Unknown]
  - Rash [Unknown]
  - Alopecia [Unknown]
  - Erythema [Unknown]
  - Eyelid disorder [Unknown]
  - Pruritus [Unknown]
  - Dry skin [Unknown]
  - Lip erythema [Unknown]
  - Depression [Unknown]
  - Fatigue [Unknown]
  - Eyelid pain [Unknown]
  - Injection site pain [Unknown]
  - Somnolence [Unknown]
  - Sleep disorder [Unknown]
  - Ocular discomfort [Unknown]
  - Rash [Unknown]
  - Eye pruritus [Unknown]
  - Dry eye [Unknown]
  - Hypersensitivity [Unknown]
  - Oral herpes [Unknown]
  - Injection site reaction [Unknown]
  - Dermatitis atopic [Unknown]
  - Dermatitis atopic [Unknown]
  - Product dose omission issue [Unknown]

NARRATIVE: CASE EVENT DATE: 20211024
